FAERS Safety Report 6624741-0 (Version None)
Quarter: 2010Q1

REPORT INFORMATION
  Report Type: 
  Country: None (occurrence: None)
  Receive Date: 20100310
  Receipt Date: 20100301
  Transmission Date: 20100710
  Serious: Yes (Other)
  Sender: FDA-Public Use
  Company Number: GR-NOVOPROD-305137

PATIENT
  Age: 33 Year
  Sex: Male

DRUGS (1)
  1. NORDITROPIN [Suspect]
     Indication: OFF LABEL USE
     Dosage: 4.75 IU, QD

REACTIONS (2)
  - DRUG ABUSE [None]
  - TENOSYNOVITIS STENOSANS [None]
